FAERS Safety Report 6511034-5 (Version None)
Quarter: 2009Q4

REPORT INFORMATION
  Report Type: 
  Country: None (occurrence: None)
  Receive Date: 20091222
  Receipt Date: 20090217
  Transmission Date: 20100525
  Serious: No
  Sender: FDA-Public Use
  Company Number: US-ASTRAZENECA-2009UW04504

PATIENT
  Age: 85 Year
  Sex: Female
  Weight: 71.2 kg

DRUGS (3)
  1. CRESTOR [Suspect]
     Route: 048
     Dates: start: 20090213
  2. COUMADIN [Concomitant]
  3. COREG [Concomitant]

REACTIONS (4)
  - DIZZINESS [None]
  - MUSCLE SPASMS [None]
  - NAUSEA [None]
  - NERVOUSNESS [None]
